FAERS Safety Report 6580797-5 (Version None)
Quarter: 2010Q1

REPORT INFORMATION
  Report Type: 
  Country: None (occurrence: None)
  Receive Date: 20100213
  Receipt Date: 20100201
  Transmission Date: 20100710
  Serious: Yes (Hospitalization)
  Sender: FDA-Public Use
  Company Number: US-ELI_LILLY_AND_COMPANY-US201002001629

PATIENT
  Age: 78 Year
  Sex: Female

DRUGS (23)
  1. FORTEO [Suspect]
     Indication: OSTEOPOROSIS
     Dosage: 20 UG, DAILY (1/D)
     Dates: start: 20090101
  2. CYMBALTA [Suspect]
     Indication: DEPRESSION
     Dosage: 60 MG, EACH MORNING
  3. CYMBALTA [Suspect]
     Dosage: 30 MG, EACH EVENING
  4. AMITIZA [Concomitant]
     Indication: CONSTIPATION
     Dosage: UNK, 2/D
  5. AVALIDE [Concomitant]
     Indication: BLOOD PRESSURE
     Dosage: 1 D/F, DAILY (1/D)
  6. AMLODIPINE [Concomitant]
     Indication: BLOOD PRESSURE
     Dosage: 5 MG, EACH MORNING
  7. HYDROCHLOROTHIAZIDE [Concomitant]
     Indication: BLOOD PRESSURE
     Dosage: 25 MG, EACH MORNING
  8. NEXIUM [Concomitant]
     Indication: DYSPEPSIA
     Dosage: 40 MG, EACH MORNING
  9. NAMENDA [Concomitant]
     Indication: MEMORY IMPAIRMENT
     Dosage: 40 MG, EACH MORNING
  10. OXYCONTIN [Concomitant]
     Indication: PAIN
     Dosage: 10 MG, 5-6 TIMES PER DAY
  11. COLACE [Concomitant]
     Indication: CONSTIPATION
     Dosage: UNK, 2/D
  12. COLACE [Concomitant]
     Dosage: UNK, EACH EVENING
  13. CRESTOR [Concomitant]
     Indication: BLOOD CHOLESTEROL
     Dosage: 40 MG, UNK
  14. ASPIRIN [Concomitant]
  15. GABAPENTIN [Concomitant]
     Indication: PAIN
     Dosage: 100 MG, 2/D
  16. VITAMIN C [Concomitant]
  17. MULTI-VITAMIN [Concomitant]
  18. CALCIUM, COMBINATIONS WITH OTHER DRUGS [Concomitant]
  19. CARVEDILOL [Concomitant]
     Indication: CARDIAC DISORDER
     Dosage: 6.25 MG, 2/D
  20. FISH OIL [Concomitant]
     Dosage: 1200 MG, 3/D
  21. LEXAPRO [Concomitant]
     Indication: DEPRESSION
     Dosage: 10 MG, DAILY (1/D)
  22. AMBIEN CR [Concomitant]
     Dosage: 6.25 MG, AS NEEDED
  23. NASONEX [Concomitant]
     Dosage: 60 UG, AS NEEDED
     Route: 045

REACTIONS (5)
  - ASTHENIA [None]
  - BACK PAIN [None]
  - CYSTITIS [None]
  - FALL [None]
  - PAIN IN EXTREMITY [None]
